FAERS Safety Report 9314045 (Version 3)
Quarter: 2013Q4

REPORT INFORMATION
  Report Type: Spontaneous
  Country: US (occurrence: US)
  Receive Date: 20130529
  Receipt Date: 20131219
  Transmission Date: 20140711
  Serious: Yes (Hospitalization, Other)
  Sender: FDA-Public Use
  Company Number: US-CELGENEUS-163-21880-13053379

PATIENT
  Age: 70 Year
  Sex: Female

DRUGS (27)
  1. REVLIMID [Suspect]
     Indication: PLASMA CELL MYELOMA
     Dosage: 10 MILLIGRAM
     Route: 048
     Dates: start: 20110210
  2. THALOMID [Suspect]
     Indication: PLASMA CELL MYELOMA
     Dosage: 200 MILLIGRAM
     Route: 048
     Dates: start: 200811
  3. THALOMID [Suspect]
     Dosage: 50 MILLIGRAM
     Route: 048
     Dates: start: 200812
  4. ASPIRIN [Concomitant]
     Indication: PRODUCT USED FOR UNKNOWN INDICATION
     Route: 065
  5. COLESTIPOL HCL [Concomitant]
     Indication: PRODUCT USED FOR UNKNOWN INDICATION
     Dosage: 1 GRAM
     Route: 048
  6. COUMADIN [Concomitant]
     Indication: PRODUCT USED FOR UNKNOWN INDICATION
     Dosage: 5 MILLIGRAM
     Route: 065
  7. COUMADIN [Concomitant]
     Dosage: 4 MILLIGRAM
     Route: 048
  8. CYMBALTA [Concomitant]
     Indication: PRODUCT USED FOR UNKNOWN INDICATION
     Dosage: 60 MILLIGRAM
     Route: 048
  9. JANUVIA [Concomitant]
     Indication: PRODUCT USED FOR UNKNOWN INDICATION
     Dosage: 100 MILLIGRAM
     Route: 065
  10. LASIX [Concomitant]
     Indication: PRODUCT USED FOR UNKNOWN INDICATION
     Route: 065
  11. GLIPIZIDE [Concomitant]
     Indication: PRODUCT USED FOR UNKNOWN INDICATION
     Dosage: 20 MILLIGRAM
     Route: 048
  12. LEVOTHYROXINE [Concomitant]
     Indication: PRODUCT USED FOR UNKNOWN INDICATION
     Dosage: 75 MICROGRAM
     Route: 048
  13. LISINOPRIL [Concomitant]
     Indication: PRODUCT USED FOR UNKNOWN INDICATION
     Dosage: 10 MILLIGRAM
     Route: 048
  14. VELCADE [Concomitant]
     Indication: PRODUCT USED FOR UNKNOWN INDICATION
     Route: 065
     Dates: end: 20130422
  15. HYDROCHLOROTHIAZIDE [Concomitant]
     Indication: PRODUCT USED FOR UNKNOWN INDICATION
     Route: 065
  16. MULTIVITAMINS [Concomitant]
     Indication: PRODUCT USED FOR UNKNOWN INDICATION
     Route: 065
  17. PREDNISONE [Concomitant]
     Indication: PRODUCT USED FOR UNKNOWN INDICATION
     Dosage: 20 MILLIGRAM
     Route: 048
  18. ULORIC [Concomitant]
     Indication: PRODUCT USED FOR UNKNOWN INDICATION
     Dosage: 40 MILLIGRAM
     Route: 048
  19. IMODIUM AD [Concomitant]
     Indication: DIARRHOEA
     Dosage: 6 MILLIGRAM
     Route: 048
  20. POTASSIUM [Concomitant]
     Indication: HYPOKALAEMIA
     Dosage: 40 MILLIEQUIVALENTS
     Route: 065
     Dates: start: 20130502
  21. NOVOLOG [Concomitant]
     Indication: TYPE 2 DIABETES MELLITUS
     Route: 065
  22. METOPROLOL TARTRATE [Concomitant]
     Indication: PRODUCT USED FOR UNKNOWN INDICATION
     Dosage: 50 MILLIGRAM
     Route: 065
  23. COLACE [Concomitant]
     Indication: PRODUCT USED FOR UNKNOWN INDICATION
     Dosage: 200 MILLIGRAM
     Route: 065
  24. AMBIEN [Concomitant]
     Indication: INSOMNIA
     Dosage: 5 MILLIGRAM
     Route: 065
  25. PERCOCET [Concomitant]
     Indication: PAIN
     Dosage: 5/325
     Route: 048
  26. MYLANTA [Concomitant]
     Indication: DYSPEPSIA
     Dosage: 180 MILLILITER
     Route: 048
  27. TYLENOL [Concomitant]
     Indication: PAIN
     Dosage: 3900 MILLIGRAM
     Route: 048

REACTIONS (4)
  - Invasive ductal breast carcinoma [Unknown]
  - Pancytopenia [Unknown]
  - Gastric ulcer haemorrhage [Recovering/Resolving]
  - Atrial fibrillation [Recovered/Resolved]
